FAERS Safety Report 16731627 (Version 2)
Quarter: 2019Q4

REPORT INFORMATION
  Report Type: Report from Study
  Country: MX (occurrence: MX)
  Receive Date: 20190822
  Receipt Date: 20191001
  Transmission Date: 20200122
  Serious: Yes (Other)
  Sender: FDA-Public Use
  Company Number: PHHY2019MX194767

PATIENT
  Age: 49 Year
  Sex: Female
  Weight: 74 kg

DRUGS (2)
  1. GALVUS MET [Suspect]
     Active Substance: METFORMIN HYDROCHLORIDE\VILDAGLIPTIN
     Indication: DIABETES MELLITUS
     Dosage: 2 DF (METFORMIN 850 MG, VILDAGLIPTIN 50 MG), QD
     Route: 048
     Dates: start: 201701
  2. BUPRENORPHINE. [Concomitant]
     Active Substance: BUPRENORPHINE
     Indication: PRODUCT USED FOR UNKNOWN INDICATION
     Route: 065

REACTIONS (11)
  - Bone marrow failure [Unknown]
  - Autoimmune disorder [Unknown]
  - Paraesthesia [Unknown]
  - Anaemia [Unknown]
  - Blood disorder [Unknown]
  - Hypertension [Unknown]
  - Blood pressure abnormal [Unknown]
  - Thyroiditis [Unknown]
  - Pain [Recovering/Resolving]
  - Chronic inflammatory demyelinating polyradiculoneuropathy [Unknown]
  - Insomnia [Unknown]

NARRATIVE: CASE EVENT DATE: 201703
